FAERS Safety Report 7136709-9 (Version None)
Quarter: 2010Q4

REPORT INFORMATION
  Report Type: 
  Country: None (occurrence: None)
  Receive Date: 20101206
  Receipt Date: 20090226
  Transmission Date: 20110411
  Serious: Yes (Death, Hospitalization)
  Sender: FDA-Public Use
  Company Number: US-ACTELION-A-NJ2007-18970

PATIENT

DRUGS (2)
  1. TRACLEER [Suspect]
     Indication: PULMONARY ARTERIAL HYPERTENSION
     Route: 048
     Dates: start: 20050913
  2. VENTAVIS [Suspect]
     Indication: PULMONARY ARTERIAL HYPERTENSION
     Route: 055
     Dates: start: 20070801, end: 20071201

REACTIONS (7)
  - CARDIAC FAILURE CONGESTIVE [None]
  - CHEST PAIN [None]
  - DEATH [None]
  - DIZZINESS [None]
  - FLUID OVERLOAD [None]
  - HEADACHE [None]
  - HYPOTENSION [None]
